FAERS Safety Report 9374335 (Version 1)
Quarter: 2013Q2

REPORT INFORMATION
  Report Type: Spontaneous
  Country: US (occurrence: US)
  Receive Date: 20130628
  Receipt Date: 20130628
  Transmission Date: 20140414
  Serious: No
  Sender: FDA-Public Use
  Company Number: US-JNJFOC-20130609589

PATIENT
  Sex: Female
  Weight: 124.74 kg

DRUGS (7)
  1. DURAGESIC [Suspect]
     Indication: PAIN
     Dosage: 25 UG/HR PATCH
     Route: 062
     Dates: start: 201301, end: 2013
  2. DURAGESIC [Suspect]
     Indication: PAIN
     Dosage: 100 UG/HR
     Route: 062
     Dates: start: 2013
  3. NUCYNTA [Concomitant]
     Indication: BREAKTHROUGH PAIN
     Dosage: EVERY 4-6 HOURS
     Route: 048
  4. PERCOCET [Concomitant]
     Indication: BREAKTHROUGH PAIN
     Dosage: 10/325 MG 6 HOUR
     Route: 048
  5. CYMBALTA [Concomitant]
     Dosage: 30 MG
     Route: 048
  6. LYRICA [Concomitant]
     Route: 048
  7. VITAMIN [Concomitant]
     Route: 065

REACTIONS (4)
  - Therapeutic response decreased [Recovered/Resolved]
  - Product quality issue [Unknown]
  - Wrong technique in drug usage process [Unknown]
  - Application site erosion [Not Recovered/Not Resolved]
